APPROVED DRUG PRODUCT: CALCIJEX
Active Ingredient: CALCITRIOL
Strength: 0.002MG/ML **Federal Register determination that product was not discontinued or withdrawn for safety or effectiveness reasons**
Dosage Form/Route: INJECTABLE;INJECTION
Application: N018874 | Product #002
Applicant: ABBVIE INC
Approved: Sep 25, 1986 | RLD: Yes | RS: No | Type: DISCN